FAERS Safety Report 18695216 (Version 8)
Quarter: 2021Q1

REPORT INFORMATION
  Report Type: Spontaneous
  Country: US (occurrence: US)
  Receive Date: 20210104
  Receipt Date: 20210212
  Transmission Date: 20210419
  Serious: No
  Sender: FDA-Public Use
  Company Number: US-GLAXOSMITHKLINE-US2020AMR258993

PATIENT
  Age: 70 Year
  Sex: Female

DRUGS (1)
  1. ZEJULA [Suspect]
     Active Substance: NIRAPARIB
     Indication: OVARIAN CANCER
     Dosage: 300 MG, QD
     Dates: start: 20201225

REACTIONS (16)
  - Nausea [Unknown]
  - Constipation [Not Recovered/Not Resolved]
  - Pollakiuria [Unknown]
  - Platelet count decreased [Unknown]
  - Inappropriate schedule of product administration [Unknown]
  - Pain [Unknown]
  - Arthralgia [Unknown]
  - Rash erythematous [Unknown]
  - Oral infection [Unknown]
  - Asthenia [Unknown]
  - Headache [Unknown]
  - Contusion [Unknown]
  - Pruritus [Unknown]
  - Stomatitis [Unknown]
  - Abdominal pain upper [Unknown]
  - Sleep disorder due to a general medical condition [Unknown]

NARRATIVE: CASE EVENT DATE: 20201225
